FAERS Safety Report 6710086-7 (Version None)
Quarter: 2010Q2

REPORT INFORMATION
  Report Type: 
  Country: None (occurrence: None)
  Receive Date: 20100504
  Receipt Date: 20100422
  Transmission Date: 20101027
  Serious: No
  Sender: FDA-Public Use
  Company Number: US-JNJFOC-20100406680

PATIENT
  Sex: Female
  Weight: 91.63 kg

DRUGS (2)
  1. DURAGESIC-100 [Suspect]
     Indication: BACK PAIN
     Dosage: 50UG/HR PLUS 50 UG/HR
     Route: 062
  2. DURAGESIC-100 [Suspect]
     Dosage: 50UG/HR PLUS 50 UG/HR
     Route: 062

REACTIONS (2)
  - TREATMENT NONCOMPLIANCE [None]
  - WRONG TECHNIQUE IN DRUG USAGE PROCESS [None]
